FAERS Safety Report 5982210-5 (Version None)
Quarter: 2008Q4

REPORT INFORMATION
  Report Type: 
  Country: None (occurrence: None)
  Receive Date: 20081208
  Receipt Date: 20081202
  Transmission Date: 20090506
  Serious: Yes (Other)
  Sender: FDA-Public Use
  Company Number: US-JNJFOC-20081201371

PATIENT
  Sex: Male
  Weight: 122.47 kg

DRUGS (2)
  1. RISPERIDONE [Suspect]
     Indication: BIPOLAR DISORDER
     Dosage: 2 OR 3 MG TABLETS
     Route: 048
  2. VISTARIL [Concomitant]
     Indication: ANXIETY
     Route: 048

REACTIONS (2)
  - MYALGIA [None]
  - OSTEOARTHRITIS [None]
